FAERS Safety Report 5007768-4 (Version None)
Quarter: 2006Q2

REPORT INFORMATION
  Report Type: 
  Country: None (occurrence: None)
  Receive Date: 20060522
  Receipt Date: 20060517
  Transmission Date: 20061013
  Serious: Yes (Other)
  Sender: FDA-Public Use
  Company Number: US-GLAXOSMITHKLINE-A0606035A

PATIENT

DRUGS (1)
  1. PAROXETINE [Suspect]
     Indication: BIPOLAR DISORDER
     Dosage: 40MG PER DAY
     Route: 048

REACTIONS (3)
  - DRUG EXPOSURE DURING PREGNANCY [None]
  - PLATELET COUNT DECREASED [None]
  - PREMATURE LABOUR [None]
